FAERS Safety Report 11747430 (Version 2)
Quarter: 2015Q4

REPORT INFORMATION
  Report Type: Spontaneous
  Country: US (occurrence: US)
  Receive Date: 20151117
  Receipt Date: 20151216
  Transmission Date: 20160304
  Serious: Yes (Death)
  Sender: FDA-Public Use
  Company Number: US-CELGENE-USA-2015113688

PATIENT
  Age: 60 Year
  Sex: Female

DRUGS (1)
  1. ABRAXANE [Suspect]
     Active Substance: PACLITAXEL
     Indication: OVARIAN CANCER
     Dosage: 150 MILLIGRAM
     Route: 041
     Dates: start: 20150727, end: 20150824

REACTIONS (1)
  - Ovarian cancer [Fatal]

NARRATIVE: CASE EVENT DATE: 20151005
